FAERS Safety Report 10203531 (Version 1)
Quarter: 2014Q2

REPORT INFORMATION
  Report Type: Spontaneous
  Country: GB (occurrence: None)
  Receive Date: 20140523
  Receipt Date: 20140523
  Transmission Date: 20141212
  Serious: Yes (Hospitalization, Other)
  Sender: FDA-Public Use
  Company Number: AUR-APL-2014-05638

PATIENT
  Age: 67 Year
  Sex: Female

DRUGS (9)
  1. ALENDRONIC ACID (ALENDRONIC ACID) [Suspect]
     Indication: PRODUCT USED FOR UNKNOWN INDICATION
     Dosage: 70 MG, 1 IN 1 WK, ORAL
     Route: 048
     Dates: start: 2006, end: 201308
  2. ASPIRIN (ACETYLSALICYLIC ACID) [Concomitant]
  3. CALCICHEW D3 (LEKOVIT CA) [Concomitant]
  4. METHOTREXATE [Concomitant]
  5. PREDNISOLONE [Concomitant]
  6. PYRIDOSTIGMINE [Concomitant]
  7. RANITIDINE (RANITIDINE) [Concomitant]
  8. SIMVASTATIN (SIMVASTATIN) [Concomitant]
  9. SOTALOL (SOTALOL) [Concomitant]

REACTIONS (2)
  - Femur fracture [None]
  - Musculoskeletal disorder [None]
